FAERS Safety Report 8774576 (Version 1)
Quarter: 2012Q4

REPORT INFORMATION
  Report Type: 
  Country: US (occurrence: US)
  Receive Date: 20120904
  Receipt Date: 20120904
  Transmission Date: 20130627
  Serious: Yes (Hospitalization, Other)
  Sender: FDA-Public Use
  Company Number: US-ELI_LILLY_AND_COMPANY-US201208008792

PATIENT
  Sex: Female
  Weight: 86.2 kg

DRUGS (7)
  1. CYMBALTA [Suspect]
     Indication: FIBROMYALGIA
     Dosage: 20 mg, UNK
  2. CYMBALTA [Suspect]
     Dosage: 30 mg, qd
  3. CYMBALTA [Suspect]
     Dosage: 60 mg, qd
  4. LANTUS [Concomitant]
     Dosage: UNK, unknown
  5. VALIUM [Concomitant]
     Dosage: UNK, unknown
  6. HYDROCODONE [Concomitant]
     Dosage: UNK, unknown
  7. PREDNISOLONE [Concomitant]
     Dosage: UNK, unknown

REACTIONS (30)
  - Local swelling [Unknown]
  - Speech disorder [Unknown]
  - Depression [Unknown]
  - Tremor [Unknown]
  - Visual acuity reduced [Unknown]
  - Diarrhoea [Unknown]
  - Muscle tightness [Unknown]
  - Decreased appetite [Unknown]
  - Weight decreased [Unknown]
  - Nervousness [Unknown]
  - Therapeutic product ineffective [Unknown]
  - Parathyroid tumour [Recovered/Resolved]
  - Panic attack [Unknown]
  - Pneumonia [Unknown]
  - Asthma [Unknown]
  - Hypertension [Unknown]
  - Pain [Unknown]
  - Immune system disorder [Unknown]
  - Parathyroid cyst [Unknown]
  - Vitamin B12 deficiency [Unknown]
  - Vitamin D decreased [Unknown]
  - Blood iron decreased [Unknown]
  - Blood potassium decreased [Unknown]
  - Anaemia [Unknown]
  - Memory impairment [Unknown]
  - Hypoacusis [Unknown]
  - Foot fracture [Unknown]
  - Abnormal faeces [Unknown]
  - Muscular weakness [Unknown]
  - Eye colour change [Unknown]
